FAERS Safety Report 5017635-8 (Version None)
Quarter: 2006Q2

REPORT INFORMATION
  Report Type: 
  Country: None (occurrence: None)
  Receive Date: 20060605
  Receipt Date: 20051130
  Transmission Date: 20061013
  Serious: Yes (Hospitalization, Disabling)
  Sender: FDA-Public Use
  Company Number: US-ROCHE-427211

PATIENT
  Age: 20 Year
  Sex: Male

DRUGS (4)
  1. ACCUTANE [Suspect]
     Indication: ACNE
     Route: 048
     Dates: start: 20030324
  2. ACCUTANE [Suspect]
     Dosage: DOSAGE REPORTED AS 20 MG.  FREQUENCY UNSPECIFIED.
     Route: 048
     Dates: start: 20030315, end: 20030323
  3. ACCUTANE [Suspect]
     Route: 048
     Dates: start: 20030315, end: 20030315
  4. AMNESTEEM [Suspect]
     Indication: DRUG USE FOR UNKNOWN INDICATION
     Route: 065

REACTIONS (11)
  - ACNE FULMINANS [None]
  - CHEILITIS [None]
  - HAEMORRHAGIC CYST [None]
  - INFECTED CYST [None]
  - INJURY [None]
  - PAIN [None]
  - PURULENT DISCHARGE [None]
  - RASH PUSTULAR [None]
  - SCAR [None]
  - ULCER [None]
  - WHITE BLOOD CELL COUNT INCREASED [None]
